FAERS Safety Report 15459038 (Version 2)
Quarter: 2018Q4

REPORT INFORMATION
  Report Type: Report from Study
  Country: PK (occurrence: PK)
  Receive Date: 20181003
  Receipt Date: 20181125
  Transmission Date: 20190204
  Serious: Yes (Other)
  Sender: FDA-Public Use
  Company Number: PHHY2018PK108273

PATIENT
  Sex: Female
  Weight: 42 kg

DRUGS (2)
  1. GLIVEC [Suspect]
     Active Substance: IMATINIB MESYLATE
     Indication: CHRONIC MYELOID LEUKAEMIA
     Dosage: 3 DF (300 MG), QD
     Route: 048
     Dates: start: 20180530, end: 20181116
  2. GLIVEC [Suspect]
     Active Substance: IMATINIB MESYLATE
     Dosage: 2 DF (200 MG), QD
     Route: 048
     Dates: start: 20181116

REACTIONS (5)
  - Anaemia [Unknown]
  - Thrombocytopenia [Unknown]
  - Neutropenia [Unknown]
  - Leukopenia [Unknown]
  - Fatigue [Unknown]
